FAERS Safety Report 5950954-7 (Version None)
Quarter: 2008Q4

REPORT INFORMATION
  Report Type: 
  Country: None (occurrence: None)
  Receive Date: 20081112
  Receipt Date: 20081031
  Transmission Date: 20090506
  Serious: Yes (Other)
  Sender: FDA-Public Use
  Company Number: US-PFIZER INC-2008092910

PATIENT
  Sex: Female
  Weight: 53.5 kg

DRUGS (1)
  1. XALATAN [Suspect]
     Indication: GLAUCOMA
     Route: 047
     Dates: start: 20061001, end: 20081001

REACTIONS (3)
  - EYE INFLAMMATION [None]
  - EYE SWELLING [None]
  - MACULOPATHY [None]
